FAERS Safety Report 25970090 (Version 1)
Quarter: 2025Q4

REPORT INFORMATION
  Report Type: Spontaneous
  Country: EU (occurrence: EU)
  Receive Date: 20251028
  Receipt Date: 20251028
  Transmission Date: 20260117
  Serious: Yes (Other)
  Sender: MYLAN
  Company Number: None

PATIENT
  Age: 29 Year
  Sex: Female
  Weight: 80 kg

DRUGS (1)
  1. ISOTRETINOIN [Suspect]
     Active Substance: ISOTRETINOIN
     Indication: Acne
     Dosage: UNK,(CAPSULE, SOFT)
     Dates: start: 20240101, end: 20240601

REACTIONS (1)
  - Rheumatic disorder [Not Recovered/Not Resolved]
